FAERS Safety Report 6792310-8 (Version None)
Quarter: 2010Q2

REPORT INFORMATION
  Report Type: 
  Country: None (occurrence: None)
  Receive Date: 20100624
  Receipt Date: 20080716
  Transmission Date: 20101027
  Serious: No
  Sender: FDA-Public Use
  Company Number: US-PFIZER INC-2008062597

PATIENT
  Age: 35 Year

DRUGS (1)
  1. DIFLUCAN [Suspect]
     Indication: BACTERIAL TEST POSITIVE
     Route: 048

REACTIONS (2)
  - DRUG INEFFECTIVE [None]
  - DRUG INTOLERANCE [None]
